FAERS Safety Report 24864216 (Version 1)
Quarter: 2025Q1

REPORT INFORMATION
  Report Type: Report from Study
  Country: NL (occurrence: NL)
  Receive Date: 20250120
  Receipt Date: 20250120
  Transmission Date: 20250409
  Serious: Yes (Death, Other)
  Sender: MERZ
  Company Number: NL-MERZ PHARMACEUTICALS, LLC-ACO_176276_2025

PATIENT
  Age: 70 Year
  Sex: Female

DRUGS (1)
  1. DALFAMPRIDINE [Suspect]
     Active Substance: DALFAMPRIDINE
     Indication: Multiple sclerosis
     Dosage: 10 MILLIGRAM, BID
     Route: 065
     Dates: start: 20190921, end: 20241222

REACTIONS (5)
  - Death [Fatal]
  - Multiple sclerosis [Unknown]
  - Blood sodium decreased [Unknown]
  - White blood cell analysis abnormal [Unknown]
  - Bone marrow disorder [Unknown]

NARRATIVE: CASE EVENT DATE: 20241222
